FAERS Safety Report 6432328-8 (Version None)
Quarter: 2009Q4

REPORT INFORMATION
  Report Type: 
  Country: None (occurrence: None)
  Receive Date: 20091109
  Receipt Date: 20081226
  Transmission Date: 20100525
  Serious: No
  Sender: FDA-Public Use
  Company Number: US-B.I. PHARMACEUTICALS,INC./RIDGEFIELD-2008-BP-19136BP

PATIENT
  Age: 2 Year
  Sex: Female

DRUGS (1)
  1. ZANTAC [Suspect]
     Dosage: 150 MG
     Route: 048
     Dates: start: 20081226, end: 20081226

REACTIONS (1)
  - ACCIDENTAL EXPOSURE [None]
